FAERS Safety Report 20006321 (Version 1)
Quarter: 2021Q4

REPORT INFORMATION
  Report Type: Spontaneous
  Country: RU (occurrence: RU)
  Receive Date: 20211028
  Receipt Date: 20211028
  Transmission Date: 20220304
  Serious: Yes (Other)
  Sender: FDA-Public Use
  Company Number: 2021A785098

PATIENT
  Age: 65 Year
  Sex: Female
  Weight: 80 kg

DRUGS (2)
  1. IMFINZI [Suspect]
     Active Substance: DURVALUMAB
     Indication: Small cell lung cancer
     Dosage: 1500 MG, IN COMBINATION WITH CHEMOTHERAPY, EVERY 3 WEEKS
     Route: 042
     Dates: start: 202101, end: 202106
  2. AETOPOSIDUM AND CARBOPLATIN [Concomitant]

REACTIONS (1)
  - Malignant neoplasm progression [Recovering/Resolving]
